FAERS Safety Report 9017414 (Version 1)
Quarter: 2013Q1

REPORT INFORMATION
  Report Type: Spontaneous
  Country: CA (occurrence: CA)
  Receive Date: 20130117
  Receipt Date: 20130117
  Transmission Date: 20140127
  Serious: Yes (Disabling, Other)
  Sender: FDA-Public Use
  Company Number: CA-BAYER-2013-002276

PATIENT
  Age: 48 Year
  Sex: Female

DRUGS (5)
  1. AVELOX [Suspect]
     Indication: BRONCHOPNEUMONIA
     Dosage: UNK
     Dates: start: 201208
  2. AVELOX [Suspect]
     Indication: BRONCHITIS
     Dosage: UNK
     Dates: start: 201212
  3. PREDNISONE [Concomitant]
  4. PREDNISONE [Concomitant]
  5. ANABOLIC STEROIDS [Concomitant]
     Indication: ASTHMA

REACTIONS (6)
  - Tendon rupture [None]
  - Oedema peripheral [None]
  - Pain [None]
  - Weight bearing difficulty [None]
  - Synovial cyst [None]
  - Contusion [None]
